FAERS Safety Report 9285985 (Version 1)
Quarter: 2013Q2

REPORT INFORMATION
  Report Type: Report from Study
  Country: CA (occurrence: CA)
  Receive Date: 20130513
  Receipt Date: 20130513
  Transmission Date: 20140414
  Serious: Yes (Hospitalization)
  Sender: FDA-Public Use
  Company Number: CA-JNJFOC-20130505995

PATIENT
  Age: 82 Year
  Sex: Male
  Weight: 68 kg

DRUGS (12)
  1. REMICADE [Suspect]
     Indication: COLITIS ULCERATIVE
     Route: 042
     Dates: start: 20120906
  2. PROCLAT [Concomitant]
     Route: 065
  3. MEZAVANT [Concomitant]
     Route: 065
  4. METOPROLOL [Concomitant]
     Route: 065
  5. ZOPLICONE [Concomitant]
     Route: 065
  6. VITAMIN D [Concomitant]
     Route: 065
  7. SALOFALK [Concomitant]
     Route: 065
  8. ELTROXIN [Concomitant]
     Route: 065
  9. METAMUCIL [Concomitant]
     Route: 065
  10. CALCIUM [Concomitant]
     Route: 065
  11. GRAVOL [Concomitant]
     Indication: PREMEDICATION
     Route: 042
  12. SOLUCORTEF [Concomitant]
     Indication: PREMEDICATION
     Route: 042

REACTIONS (1)
  - Transient ischaemic attack [Recovered/Resolved]
